FAERS Safety Report 5541742-4 (Version None)
Quarter: 2007Q4

REPORT INFORMATION
  Report Type: 
  Country: None (occurrence: None)
  Receive Date: 20071205
  Receipt Date: 20071205
  Transmission Date: 20080405
  Serious: Yes (Disabling)
  Sender: FDA-Public Use
  Company Number: None

PATIENT
  Age: 68 Year
  Sex: Male
  Weight: 75.2971 kg

DRUGS (14)
  1. ARICEPT [Suspect]
     Indication: COGNITIVE DISORDER
     Dosage: 10MG  ONCE DAILY  PO
     Route: 048
     Dates: start: 20050420, end: 20070201
  2. ARICEPT [Suspect]
     Indication: COGNITIVE DISORDER
     Dosage: 10MG  ONCE DAILY  PO
     Route: 048
     Dates: start: 20070707
  3. NORVASC [Concomitant]
  4. CLARITIN [Concomitant]
  5. CELEBREX [Concomitant]
  6. ZYPREXA [Concomitant]
  7. LEXAPRO [Concomitant]
  8. DYAZIDE [Concomitant]
  9. LORTAB [Concomitant]
  10. GEODON [Concomitant]
  11. M.V.I. [Concomitant]
  12. TYLENOL ES [Concomitant]
  13. ASPIRIN [Concomitant]
  14. SYNTHROID [Concomitant]

REACTIONS (2)
  - DYSTONIA [None]
  - PHYSICAL EXAMINATION ABNORMAL [None]
